FAERS Safety Report 9999088 (Version 1)
Quarter: 2014Q1

REPORT INFORMATION
  Report Type: Spontaneous
  Country: US (occurrence: None)
  Receive Date: 20140311
  Receipt Date: 20140311
  Transmission Date: 20141002
  Serious: Yes (Other)
  Sender: FDA-Public Use
  Company Number: None

PATIENT
  Age: 29 Year
  Sex: Male
  Weight: 74.84 kg

DRUGS (3)
  1. LORAZEPAM [Suspect]
     Indication: PANIC ATTACK
     Dosage: TAKEN BY MOUTH
     Route: 048
     Dates: start: 20140207, end: 20140307
  2. LORAZEPAM [Suspect]
     Indication: GENERALISED ANXIETY DISORDER
     Dosage: TAKEN BY MOUTH
     Route: 048
     Dates: start: 20140207, end: 20140307
  3. LORAZEPAM [Suspect]
     Indication: INSOMNIA
     Dosage: TAKEN BY MOUTH
     Route: 048
     Dates: start: 20140207, end: 20140307

REACTIONS (7)
  - Palpitations [None]
  - Panic attack [None]
  - Insomnia [None]
  - Product substitution issue [None]
  - Product quality issue [None]
  - Drug ineffective [None]
  - Condition aggravated [None]
